FAERS Safety Report 9385658 (Version 2)
Quarter: 2013Q3

REPORT INFORMATION
  Report Type: Spontaneous
  Country: ES (occurrence: ES)
  Receive Date: 20130701
  Receipt Date: 20130716
  Transmission Date: 20140515
  Serious: Yes (Life-Threatening)
  Sender: FDA-Public Use
  Company Number: 1776850

PATIENT
  Age: 32 Year
  Sex: Female

DRUGS (2)
  1. PROPOFOL [Suspect]
     Indication: ANALGESIC THERAPY
     Route: 040
  2. FENTANYL [Suspect]
     Indication: ANALGESIC THERAPY
     Dosage: 100 PG PICOGRAMS, INTRAVENOUS (NOT OTHERWISE SPECIFIED)?
     Route: 042

REACTIONS (6)
  - Cardiogenic shock [None]
  - Post procedural complication [None]
  - Respiratory failure [None]
  - Ventricular dysfunction [None]
  - Ejection fraction decreased [None]
  - Haemodynamic instability [None]
